FAERS Safety Report 9162809 (Version 1)
Quarter: 2013Q1

REPORT INFORMATION
  Report Type: Spontaneous
  Country: US (occurrence: None)
  Receive Date: 20130227
  Receipt Date: 20130227
  Transmission Date: 20140127
  Serious: Yes (Other)
  Sender: FDA-Public Use
  Company Number: 2013SA015894

PATIENT
  Sex: Female

DRUGS (1)
  1. CAPZASIN HP CREME [Suspect]
     Indication: ARTHRALGIA
     Dates: start: 201302, end: 201302

REACTIONS (1)
  - Chemical burn of skin [None]
